FAERS Safety Report 8239700-4 (Version None)
Quarter: 2012Q1

REPORT INFORMATION
  Report Type: 
  Country: None (occurrence: None)
  Receive Date: 20120309
  Receipt Date: 20100426
  Transmission Date: 20120608
  Serious: Yes (Other)
  Sender: FDA-Public Use
  Company Number: PHHY2010US23149

PATIENT
  Age: 47 Year
  Sex: Female

DRUGS (7)
  1. TIZANIDINE HCL [Concomitant]
  2. ZYRTEC [Concomitant]
  3. NUVIGIL [Concomitant]
  4. EXTAVIA [Suspect]
     Indication: RELAPSING-REMITTING MULTIPLE SCLEROSIS
     Dosage: 0.0625MG, QOD, SUBCUTANEOUS
     Route: 058
     Dates: start: 20100330, end: 20100403
  5. NSAID'S NO INGREDIENTS/SUBSTANCES) [Concomitant]
  6. BENICAL (CHLORPHENAMINE MALEATE, DEXTROMETHORPHAN HYDROBROMIDE, PSEUDO [Concomitant]
  7. ZANAFLEX [Concomitant]

REACTIONS (11)
  - WHEEZING [None]
  - ABNORMAL FAECES [None]
  - HYPERSENSITIVITY [None]
  - OBSTRUCTIVE AIRWAYS DISORDER [None]
  - DYSPHAGIA [None]
  - HEART RATE INCREASED [None]
  - OROPHARYNGEAL PAIN [None]
  - DYSPHONIA [None]
  - MUSCLE SPASMS [None]
  - PAIN [None]
  - URTICARIA [None]
